FAERS Safety Report 4536694-X (Version None)
Quarter: 2004Q4

REPORT INFORMATION
  Report Type: 
  Country: None (occurrence: None)
  Receive Date: 20041220
  Receipt Date: 20041206
  Transmission Date: 20050328
  Serious: Yes (Death)
  Sender: FDA-Public Use
  Company Number: 2004232048JP

PATIENT
  Age: 52 Year
  Sex: Female
  Weight: 36 kg

DRUGS (3)
  1. IRINOTECAN HYDROCHLORIDE      (IRINOTECAN HYDROCHLORIDE) [Suspect]
     Indication: PANCREATIC CARCINOMA
     Dosage: SEE IMAGE
     Route: 042
     Dates: start: 20040728, end: 20040730
  2. IRINOTECAN HYDROCHLORIDE      (IRINOTECAN HYDROCHLORIDE) [Suspect]
     Indication: PANCREATIC CARCINOMA
     Dosage: SEE IMAGE
     Route: 042
     Dates: start: 20040811, end: 20040813
  3. CIMETIDINE [Concomitant]

REACTIONS (8)
  - BONE MARROW DEPRESSION [None]
  - DEPRESSED LEVEL OF CONSCIOUSNESS [None]
  - DRUG INEFFECTIVE [None]
  - GASTROINTESTINAL HAEMORRHAGE [None]
  - GENERAL PHYSICAL HEALTH DETERIORATION [None]
  - MULTI-ORGAN FAILURE [None]
  - PANCYTOPENIA [None]
  - STENT OCCLUSION [None]
